FAERS Safety Report 9530952 (Version 1)
Quarter: 2013Q3

REPORT INFORMATION
  Report Type: Spontaneous
  Country: US (occurrence: None)
  Receive Date: 20130916
  Receipt Date: 20130916
  Transmission Date: 20140515
  Serious: Yes (Hospitalization)
  Sender: FDA-Public Use
  Company Number: None

PATIENT
  Sex: 0

DRUGS (2)
  1. DIPHENHYDRAMINE [Suspect]
     Indication: DYSTONIA
     Route: 048
     Dates: start: 2001, end: 20130626
  2. LORAZEPAM [Suspect]
     Indication: DYSTONIA
     Route: 048
     Dates: start: 20130527, end: 20130626

REACTIONS (5)
  - Mental status changes [None]
  - Fall [None]
  - Confusional state [None]
  - Hallucination [None]
  - Parkinsonism [None]
